FAERS Safety Report 8710790 (Version 2)
Quarter: 2012Q4

REPORT INFORMATION
  Report Type: 
  Country: HU (occurrence: HU)
  Receive Date: 20120807
  Receipt Date: 20121101
  Transmission Date: 20130627
  Serious: Yes (Death, Hospitalization)
  Sender: FDA-Public Use
  Company Number: HU-ELI_LILLY_AND_COMPANY-HU201208000273

PATIENT
  Age: 90 Year
  Sex: Female

DRUGS (4)
  1. FORSTEO [Suspect]
     Indication: OSTEOPOROSIS
     Dosage: UNK
     Route: 058
  2. NORVASC [Concomitant]
  3. MERCKFORMIN [Concomitant]
  4. ASPIRIN [Concomitant]

REACTIONS (4)
  - Acute myocardial infarction [Fatal]
  - Pneumonia [Fatal]
  - Pericarditis [Fatal]
  - Arrhythmia [Unknown]
